FAERS Safety Report 8519929-8 (Version None)
Quarter: 2012Q3

REPORT INFORMATION
  Report Type: 
  Country: None (occurrence: None)
  Receive Date: 20120719
  Receipt Date: 20120713
  Transmission Date: 20120928
  Serious: Yes (Hospitalization, Other)
  Sender: FDA-Public Use
  Company Number: US-AMGEN-USASP2012043798

PATIENT
  Age: 33 Year
  Sex: Female

DRUGS (2)
  1. ENBREL [Suspect]
     Indication: PSORIATIC ARTHROPATHY
     Dosage: 50 MG, QWK
     Route: 058
     Dates: start: 20090601
  2. ENBREL [Suspect]
     Indication: PSORIASIS

REACTIONS (8)
  - PREMATURE DELIVERY [None]
  - CAESAREAN SECTION [None]
  - AMNIORRHOEA [None]
  - PLANTAR FASCIITIS [None]
  - ARTHRALGIA [None]
  - TENDONITIS [None]
  - FATIGUE [None]
  - PSORIASIS [None]
